FAERS Safety Report 7715754-6 (Version None)
Quarter: 2011Q3

REPORT INFORMATION
  Report Type: 
  Country: None (occurrence: None)
  Receive Date: 20110829
  Receipt Date: 20110823
  Transmission Date: 20111222
  Serious: Yes (Death)
  Sender: FDA-Public Use
  Company Number: JP-ROCHE-798959

PATIENT
  Age: 61 Year
  Sex: Male

DRUGS (1)
  1. ROCEPHIN [Suspect]
     Dosage: DOSAGE:UNCERTAIN
     Route: 042
     Dates: start: 20100201, end: 20100201

REACTIONS (1)
  - TOXIC EPIDERMAL NECROLYSIS [None]
